FAERS Safety Report 19436227 (Version 1)
Quarter: 2021Q2

REPORT INFORMATION
  Report Type: Spontaneous
  Country: NL (occurrence: NL)
  Receive Date: 20210618
  Receipt Date: 20210618
  Transmission Date: 20210717
  Serious: Yes (Other)
  Sender: FDA-Public Use
  Company Number: NL-TEVA-2021-NL-1919656

PATIENT
  Age: 30 Year
  Sex: Female
  Weight: 74 kg

DRUGS (2)
  1. OXYTOCINE INJECTIE/INFUUS / BRAND NAME NOT SPECIFIED [Concomitant]
     Dosage: INJECTION/INFUSION, 1 UNITS PER UNITS , THERAPY START DATE AND END DATE : ASKU
  2. METHYLDOPA TABLET 250MG / BRAND NAME NOT SPECIFIED [Suspect]
     Active Substance: METHYLDOPA
     Indication: HYPERTENSION
     Dosage: 750 MILLIGRAM DAILY; THERAPY END DATE : ASKU
     Dates: start: 20210422

REACTIONS (6)
  - Decreased appetite [Recovered/Resolved]
  - Meconium in amniotic fluid [Unknown]
  - Abdominal discomfort [Unknown]
  - Prolonged rupture of membranes [Unknown]
  - Beta haemolytic streptococcal infection [Unknown]
  - Maternal exposure during pregnancy [Unknown]

NARRATIVE: CASE EVENT DATE: 20210422
